FAERS Safety Report 8478468 (Version 6)
Quarter: 2014Q4

REPORT INFORMATION
  Report Type: Spontaneous
  Country: US (occurrence: US)
  Receive Date: 20120327
  Receipt Date: 20141209
  Transmission Date: 20150529
  Serious: Yes (Hospitalization, Other)
  Sender: FDA-Public Use
  Company Number: US-GLAXOSMITHKLINE-A0971055A

PATIENT
  Age: 73 Year
  Sex: Male
  Weight: 73 kg

DRUGS (29)
  1. METOPROLOL SUCCINATE. [Concomitant]
     Active Substance: METOPROLOL SUCCINATE
  2. ZOLPIDEM [Concomitant]
     Active Substance: ZOLPIDEM\ZOLPIDEM TARTRATE
  3. MELPHALAN [Suspect]
     Active Substance: MELPHALAN
     Indication: PLASMA CELL MYELOMA
     Dosage: 12 MG, FREQUENCY 1 TO 4 DAYS F/U DAYS 1-4F/UP 20 AUG 2014 8 EVERY 24 HOURS
     Route: 048
     Dates: start: 20110418
  4. FLOMAX [Concomitant]
     Active Substance: TAMSULOSIN HYDROCHLORIDE
     Route: 048
  5. TAMSULOSIN [Concomitant]
     Active Substance: TAMSULOSIN
  6. LEVOFLOXACIN. [Concomitant]
     Active Substance: LEVOFLOXACIN
  7. COMPAZINE [Concomitant]
     Active Substance: PROCHLORPERAZINE MALEATE
     Indication: NAUSEA
     Route: 048
  8. PREDNISONE. [Concomitant]
     Active Substance: PREDNISONE
  9. ACYCLOVIR. [Concomitant]
     Active Substance: ACYCLOVIR
  10. ZOVIRAX [Concomitant]
     Active Substance: ACYCLOVIR
  11. SEVELAMER CARBONATE. [Concomitant]
     Active Substance: SEVELAMER CARBONATE
  12. PIPERACILLIN AND TAZOBACTAM [Concomitant]
     Active Substance: PIPERACILLIN SODIUM\TAZOBACTAM SODIUM
  13. COMPAZINE [Concomitant]
     Active Substance: PROCHLORPERAZINE MALEATE
     Indication: VOMITING
  14. PHENERGAN [Concomitant]
     Active Substance: PROMETHAZINE HYDROCHLORIDE
     Indication: VOMITING
  15. AMBIEN [Concomitant]
     Active Substance: ZOLPIDEM TARTRATE
     Indication: INSOMNIA
     Route: 048
  16. RENVELA [Concomitant]
     Active Substance: SEVELAMER CARBONATE
     Route: 048
  17. MORPHINE [Concomitant]
     Active Substance: MORPHINE
  18. MEGACE [Concomitant]
     Active Substance: MEGESTROL ACETATE
  19. SIMVASTATIN. [Concomitant]
     Active Substance: SIMVASTATIN
  20. PREDNISONE. [Suspect]
     Active Substance: PREDNISONE
     Indication: PLASMA CELL MYELOMA
     Dosage: 100 MG EVERY 21 DAYS
     Route: 048
     Dates: start: 20110418, end: 20120301
  21. PHENERGAN [Concomitant]
     Active Substance: PROMETHAZINE HYDROCHLORIDE
     Indication: NAUSEA
  22. DILAUDID [Concomitant]
     Active Substance: HYDROMORPHONE HYDROCHLORIDE
  23. MIRALAX [Concomitant]
     Active Substance: POLYETHYLENE GLYCOL 3350
  24. PHILLIPS [Concomitant]
     Active Substance: DOCUSATE SODIUM
     Route: 048
  25. VELCADE [Suspect]
     Active Substance: BORTEZOMIB
     Indication: PLASMA CELL MYELOMA
     Dosage: 1.3 MG/M2 ONCE WEEKLY
     Route: 042
     Dates: start: 20110418
  26. TOPROL XL [Concomitant]
     Active Substance: METOPROLOL SUCCINATE
  27. NORVASC [Concomitant]
     Active Substance: AMLODIPINE BESYLATE
     Route: 048
  28. ZOCOR [Concomitant]
     Active Substance: SIMVASTATIN
     Route: 048
  29. DOCUSATE SODIUM. [Concomitant]
     Active Substance: DOCUSATE SODIUM

REACTIONS (27)
  - Fluid overload [Recovered/Resolved]
  - Renal mass [Recovered/Resolved]
  - Non-cardiac chest pain [Unknown]
  - Pneumonia [Unknown]
  - Renal cyst [Unknown]
  - Chest discomfort [Unknown]
  - Hepatic mass [Unknown]
  - Inguinal hernia [Unknown]
  - Cholelithiasis [Unknown]
  - Pyrexia [Unknown]
  - Acute kidney injury [Unknown]
  - Abdominal pain upper [Recovered/Resolved]
  - Biliary tract disorder [Unknown]
  - Diverticulum [Unknown]
  - Nuclear magnetic resonance imaging abnormal [Unknown]
  - Dyspnoea [Unknown]
  - Blood culture positive [Unknown]
  - Malignant neoplasm progression [Unknown]
  - Pancreatitis [Unknown]
  - Atelectasis [Unknown]
  - Chest X-ray abnormal [Unknown]
  - Lung consolidation [Unknown]
  - Asthenia [Unknown]
  - Pneumonitis [Unknown]
  - Cellulitis [Unknown]
  - Renal disorder [Recovered/Resolved]
  - Derealisation [Unknown]

NARRATIVE: CASE EVENT DATE: 20110505
